FAERS Safety Report 12181148 (Version 2)
Quarter: 2016Q1

REPORT INFORMATION
  Report Type: Spontaneous
  Country: US (occurrence: US)
  Receive Date: 20160315
  Receipt Date: 20160317
  Transmission Date: 20160526
  Serious: No
  Sender: FDA-Public Use
  Company Number: US-PFIZER INC-2015167251

PATIENT
  Age: 44 Year
  Sex: Female
  Weight: 45.81 kg

DRUGS (4)
  1. IBRANCE [Suspect]
     Active Substance: PALBOCICLIB
     Indication: BREAST CANCER
     Dosage: 125 MG, DAILY (X 21 DAYS)
  2. IBRANCE [Suspect]
     Active Substance: PALBOCICLIB
     Dosage: 100 MG, CYCLIC (ONE PER DAY FOR 21 DAYS THEN BREAK FOR 7 DAYS)
     Dates: start: 201508, end: 20160215
  3. LETROZOLE. [Concomitant]
     Active Substance: LETROZOLE
     Indication: NEOPLASM MALIGNANT
     Dosage: 2.5 MG, DAILY
     Dates: start: 201508
  4. ALENDRONATE SODIUM. [Concomitant]
     Active Substance: ALENDRONATE SODIUM
     Indication: BLOOD CALCIUM ABNORMAL
     Dosage: 70 MG, WEEKLY
     Dates: start: 201512

REACTIONS (1)
  - Product use issue [Unknown]
